FAERS Safety Report 18992843 (Version 1)
Quarter: 2021Q1

REPORT INFORMATION
  Report Type: Spontaneous
  Country: PL (occurrence: PL)
  Receive Date: 20210310
  Receipt Date: 20210310
  Transmission Date: 20210420
  Serious: Yes (Other)
  Sender: FDA-Public Use
  Company Number: NVSC2021PL053520

PATIENT
  Age: 66 Year
  Sex: Female
  Weight: 97 kg

DRUGS (2)
  1. GEMCITABINE. [Suspect]
     Active Substance: GEMCITABINE
     Indication: ANAEMIA
     Dosage: 1500 MG (LAST DOSE ADMINISTERED ON 27 NOV 2018 )
     Route: 042
  2. CARBOPLATIN. [Suspect]
     Active Substance: CARBOPLATIN
     Indication: ANAEMIA
     Dosage: 300 MG
     Route: 042
     Dates: end: 20181127

REACTIONS (1)
  - Neutropenia [Unknown]

NARRATIVE: CASE EVENT DATE: 20181204
